FAERS Safety Report 5643697-0 (Version None)
Quarter: 2008Q1

REPORT INFORMATION
  Report Type: 
  Country: None (occurrence: None)
  Receive Date: 20080228
  Receipt Date: 20080228
  Transmission Date: 20080703
  Serious: Yes (Other)
  Sender: FDA-Public Use
  Company Number: ES-ABBOTT-08P-144-0439013-00

PATIENT
  Age: 60 Year
  Sex: Male

DRUGS (1)
  1. REDUCTIL [Suspect]
     Indication: OBESITY
     Route: 048
     Dates: start: 20070917, end: 20070921

REACTIONS (3)
  - CONSTIPATION [None]
  - DIPLOPIA [None]
  - PAROSMIA [None]
